FAERS Safety Report 7032705-0 (Version None)
Quarter: 2010Q4

REPORT INFORMATION
  Report Type: 
  Country: None (occurrence: None)
  Receive Date: 20101007
  Receipt Date: 20100928
  Transmission Date: 20110411
  Serious: Yes (Other)
  Sender: FDA-Public Use
  Company Number: JP-JNJCH-2010022433

PATIENT
  Age: 38 Year
  Sex: Male

DRUGS (1)
  1. RIUP %5 [Suspect]
     Indication: ALOPECIA
     Dosage: TEXT:1ML 2X DAILY
     Route: 061
     Dates: start: 20090601, end: 20100901

REACTIONS (2)
  - ANAPHYLACTIC REACTION [None]
  - URTICARIA [None]
